FAERS Safety Report 4754536-4 (Version None)
Quarter: 2005Q3

REPORT INFORMATION
  Report Type: 
  Country: None (occurrence: None)
  Receive Date: 20050829
  Receipt Date: 20050303
  Transmission Date: 20060218
  Serious: No
  Sender: FDA-Public Use
  Company Number: 0011139

PATIENT
  Age: 79 Year
  Sex: Female

DRUGS (3)
  1. ZOVIRAX [Suspect]
     Indication: DRUG USE FOR UNKNOWN INDICATION
     Route: 061
  2. DIURETIC [Concomitant]
     Route: 065
  3. ATENOLOL [Concomitant]
     Route: 065

REACTIONS (7)
  - BURNING SENSATION [None]
  - CHAPPED LIPS [None]
  - DRY SKIN [None]
  - DYSKINESIA [None]
  - LIP DRY [None]
  - SKIN BURNING SENSATION [None]
  - SWELLING FACE [None]
